FAERS Safety Report 13013838 (Version 1)
Quarter: 2016Q4

REPORT INFORMATION
  Report Type: Spontaneous
  Country: US (occurrence: US)
  Receive Date: 20161209
  Receipt Date: 20161209
  Transmission Date: 20170207
  Serious: No
  Sender: FDA-Public Use
  Company Number: US-FERRINGPH-2015FE04085

PATIENT
  Sex: Female

DRUGS (1)
  1. MENOPUR [Suspect]
     Active Substance: FOLLICLE STIMULATING HORMONE BETA POLYPEPTIDE\LUTROPIN ALFA
     Indication: INFERTILITY
     Dosage: 225 UNITS THEN INCREASED TO 300 UNITS
     Route: 058
     Dates: end: 20151106

REACTIONS (1)
  - Drug ineffective [Unknown]
